FAERS Safety Report 4641276-5 (Version None)
Quarter: 2005Q2

REPORT INFORMATION
  Report Type: 
  Country: None (occurrence: None)
  Receive Date: 20050420
  Receipt Date: 20050420
  Transmission Date: 20051028
  Serious: No
  Sender: FDA-Public Use
  Company Number: None

PATIENT
  Age: 71 Year
  Sex: Male
  Weight: 80 kg

DRUGS (2)
  1. LOVENOX [Suspect]
     Indication: THROMBOSIS
     Dosage: 80 MG  Q  12 HOURS  SUBQ
     Route: 058
     Dates: start: 20040422, end: 20040426
  2. HEPARIN [Suspect]
     Indication: THROMBOSIS
     Dosage: 1000 U/HR
     Dates: start: 20040426, end: 20040426

REACTIONS (5)
  - HAEMATOCRIT DECREASED [None]
  - HAEMODIALYSIS [None]
  - HAEMOGLOBIN DECREASED [None]
  - MELAENA [None]
  - RECTAL HAEMORRHAGE [None]
